FAERS Safety Report 4324363-0 (Version None)
Quarter: 2004Q1

REPORT INFORMATION
  Report Type: 
  Country: None (occurrence: None)
  Receive Date: 20040326
  Receipt Date: 20040204
  Transmission Date: 20041129
  Serious: No
  Sender: FDA-Public Use
  Company Number: US-GLAXOSMITHKLINE-A0496671A

PATIENT
  Age: 41 Year
  Sex: Male

DRUGS (5)
  1. ADVAIR DISKUS 100/50 [Suspect]
     Indication: ASTHMA
     Dosage: 500MCG TWICE PER DAY
     Route: 055
     Dates: start: 20031101
  2. SINGULAIR [Concomitant]
  3. ALBUTEROL [Concomitant]
  4. ZIAC [Concomitant]
  5. KLONOPIN [Concomitant]
     Route: 065

REACTIONS (3)
  - AGEUSIA [None]
  - ANOSMIA [None]
  - NASOPHARYNGITIS [None]
